FAERS Safety Report 19809564 (Version 1)
Quarter: 2021Q3

REPORT INFORMATION
  Report Type: Spontaneous
  Country: US (occurrence: US)
  Receive Date: 20210908
  Receipt Date: 20210908
  Transmission Date: 20211014
  Serious: No
  Sender: FDA-Public Use
  Company Number: US-ROCHE-2668012

PATIENT
  Sex: Female

DRUGS (1)
  1. ALECENSA [Suspect]
     Active Substance: ALECTINIB HYDROCHLORIDE
     Indication: LUNG NEOPLASM MALIGNANT
     Dosage: ONGOING: YES
     Route: 065
     Dates: start: 20200115

REACTIONS (4)
  - Constipation [Unknown]
  - Abdominal distension [Unknown]
  - Photosensitivity reaction [Unknown]
  - Feeling abnormal [Unknown]
